FAERS Safety Report 21173756 (Version 1)
Quarter: 2022Q3

REPORT INFORMATION
  Report Type: Spontaneous
  Country: US (occurrence: US)
  Receive Date: 20220804
  Receipt Date: 20220804
  Transmission Date: 20221026
  Serious: No
  Sender: FDA-Public Use
  Company Number: US-PERRIGO-22US001516

PATIENT
  Age: 82 Year
  Sex: Female
  Weight: 54.422 kg

DRUGS (4)
  1. LORATADINE [Suspect]
     Active Substance: LORATADINE
     Indication: Rhinorrhoea
     Dosage: 10 MG, SINGLE
     Route: 048
     Dates: start: 202201, end: 202201
  2. LORATADINE [Suspect]
     Active Substance: LORATADINE
     Indication: Sinusitis
     Dosage: 10 MG, SINGLE
     Route: 048
     Dates: start: 202201, end: 202201
  3. PRIMIDONE [Concomitant]
     Active Substance: PRIMIDONE
     Indication: Essential tremor
     Dosage: 250 MGUNK
     Route: 065
  4. TIMOLOL [Concomitant]
     Active Substance: TIMOLOL
     Indication: Essential tremor
     Dosage: 1 GTT BID
     Route: 065

REACTIONS (3)
  - Therapeutic product effect incomplete [Unknown]
  - Off label use [Recovered/Resolved]
  - Expired product administered [Recovered/Resolved]

NARRATIVE: CASE EVENT DATE: 20220101
